FAERS Safety Report 7276896-5 (Version None)
Quarter: 2011Q1

REPORT INFORMATION
  Report Type: 
  Country: None (occurrence: None)
  Receive Date: 20110207
  Receipt Date: 20110124
  Transmission Date: 20110831
  Serious: No
  Sender: FDA-Public Use
  Company Number: US-BIOGENIDEC-2010BI037750

PATIENT
  Age: 38 Year
  Sex: Male

DRUGS (2)
  1. TYSABRI [Suspect]
     Indication: MULTIPLE SCLEROSIS
     Route: 042
     Dates: start: 20080918, end: 20100624
  2. TYSABRI [Suspect]
     Route: 042
     Dates: start: 20100928, end: 20101026

REACTIONS (5)
  - FALL [None]
  - ACCIDENT [None]
  - HEAD INJURY [None]
  - FATIGUE [None]
  - IRRITABILITY [None]
